FAERS Safety Report 12265716 (Version 2)
Quarter: 2016Q2

REPORT INFORMATION
  Report Type: Report from Study
  Country: US (occurrence: US)
  Receive Date: 20160413
  Receipt Date: 20160502
  Transmission Date: 20160815
  Serious: Yes (Death)
  Sender: FDA-Public Use
  Company Number: US-ACTELION-A-US2016-132877

PATIENT
  Age: 71 Year
  Sex: Male
  Weight: 73.92 kg

DRUGS (4)
  1. ADCIRCA [Concomitant]
     Active Substance: TADALAFIL
  2. SELEXIPAG [Suspect]
     Active Substance: SELEXIPAG
     Dosage: 200 MCG, BID
     Route: 048
  3. LETAIRIS [Concomitant]
     Active Substance: AMBRISENTAN
  4. SELEXIPAG [Suspect]
     Active Substance: SELEXIPAG
     Indication: PULMONARY ARTERIAL HYPERTENSION
     Dosage: 800 MCG, BID
     Route: 048
     Dates: start: 20160217

REACTIONS (3)
  - Rash pruritic [Recovered/Resolved]
  - Oxygen saturation decreased [Unknown]
  - Neoplasm malignant [Fatal]

NARRATIVE: CASE EVENT DATE: 20160330
